FAERS Safety Report 25455591 (Version 1)
Quarter: 2025Q2

REPORT INFORMATION
  Report Type: Spontaneous
  Country: PL (occurrence: PL)
  Receive Date: 20250619
  Receipt Date: 20250619
  Transmission Date: 20250716
  Serious: Yes (Other)
  Sender: UCB
  Company Number: PL-UCBSA-2025035813

PATIENT
  Age: 19 Month
  Sex: Male

DRUGS (1)
  1. LEVETIRACETAM [Suspect]
     Active Substance: LEVETIRACETAM
     Indication: Severe myoclonic epilepsy of infancy

REACTIONS (5)
  - Status epilepticus [Unknown]
  - Eyelid myoclonus [Unknown]
  - Altered state of consciousness [Unknown]
  - Infection [Unknown]
  - Drug ineffective [Unknown]
